FAERS Safety Report 18735837 (Version 1)
Quarter: 2021Q1

REPORT INFORMATION
  Report Type: Spontaneous
  Country: FR (occurrence: FR)
  Receive Date: 20210113
  Receipt Date: 20210113
  Transmission Date: 20210419
  Serious: Yes (Life-Threatening, Hospitalization)
  Sender: FDA-Public Use
  Company Number: FR-PFIZER INC-2021011878

PATIENT
  Age: 26 Year
  Sex: Female

DRUGS (2)
  1. AZITHROMYCINE [Suspect]
     Active Substance: AZITHROMYCIN
     Indication: TOOTH INFECTION
     Dosage: 1000 MG, 1X/DAY
     Route: 048
     Dates: start: 202010, end: 202010
  2. METRONIDAZOLE. [Suspect]
     Active Substance: METRONIDAZOLE
     Indication: TOOTH INFECTION
     Dosage: 750 MG, 1X/DAY
     Route: 048
     Dates: start: 202010, end: 202010

REACTIONS (6)
  - Urticaria [Recovered/Resolved]
  - Anaphylactic shock [Recovered/Resolved]
  - Rash papular [Recovered/Resolved]
  - Hypotension [Recovered/Resolved]
  - Malaise [Recovered/Resolved]
  - Pruritus [Recovered/Resolved]

NARRATIVE: CASE EVENT DATE: 202010
